FAERS Safety Report 15117568 (Version 1)
Quarter: 2018Q3

REPORT INFORMATION
  Report Type: Spontaneous
  Country: FR (occurrence: FR)
  Receive Date: 20180706
  Receipt Date: 20180706
  Transmission Date: 20181010
  Serious: Yes (Hospitalization, Other)
  Sender: FDA-Public Use
  Company Number: FR-ALLERGAN-1834025US

PATIENT
  Age: 46 Year
  Sex: Female
  Weight: 53 kg

DRUGS (8)
  1. ATARAX [Suspect]
     Active Substance: HYDROXYZINE HYDROCHLORIDE
     Indication: TOXICITY TO VARIOUS AGENTS
     Dosage: 750 MG, UNK
     Route: 048
     Dates: start: 20180526, end: 20180527
  2. ALPRAZOLAM. [Concomitant]
     Active Substance: ALPRAZOLAM
     Indication: TOXICITY TO VARIOUS AGENTS
     Dosage: 5 MG, UNK
     Route: 048
     Dates: start: 20180526, end: 20180527
  3. BREXIN [Concomitant]
     Indication: TOXICITY TO VARIOUS AGENTS
     Dosage: 20 MG, UNK
     Route: 048
     Dates: start: 20180526, end: 20180527
  4. IBUPROFENE [Suspect]
     Active Substance: IBUPROFEN
     Indication: TOXICITY TO VARIOUS AGENTS
     Dosage: 6 G, UNK
     Route: 048
     Dates: start: 20180526, end: 20180527
  5. ESCITALOPRAM OXALATE ? BP [Suspect]
     Active Substance: ESCITALOPRAM OXALATE
     Indication: TOXICITY TO VARIOUS AGENTS
     Dosage: OVERDOSE: 140MG
     Route: 048
     Dates: start: 20180526, end: 20180527
  6. COLTRAMYL [Suspect]
     Active Substance: THIOCOLCHICOSIDE
     Indication: TOXICITY TO VARIOUS AGENTS
     Dosage: 48 MG, UNK
     Route: 048
     Dates: start: 20180526, end: 20180527
  7. PARACETAMOL [Suspect]
     Active Substance: ACETAMINOPHEN
     Indication: TOXICITY TO VARIOUS AGENTS
     Dosage: 8.8 G, UNK
     Route: 065
     Dates: start: 20180526, end: 20180527
  8. CEFUROXIME. [Concomitant]
     Active Substance: CEFUROXIME
     Indication: TOXICITY TO VARIOUS AGENTS
     Dosage: UNK
     Route: 048
     Dates: start: 20180526, end: 20180527

REACTIONS (4)
  - Renal failure [Recovered/Resolved]
  - Intentional overdose [Unknown]
  - Hyperleukocytosis [Recovered/Resolved]
  - Pancreatitis [Recovered/Resolved]

NARRATIVE: CASE EVENT DATE: 20180528
